FAERS Safety Report 24751477 (Version 1)
Quarter: 2024Q4

REPORT INFORMATION
  Report Type: Spontaneous
  Country: US (occurrence: US)
  Receive Date: 20241219
  Receipt Date: 20241219
  Transmission Date: 20250115
  Serious: No
  Sender: REVANCE THERAPEUTICS
  Company Number: US-REVANCE THERAPEUTICS INC.-US-REV-2024-000573

PATIENT

DRUGS (1)
  1. DAXIBOTULINUMTOXIN A-LANM [Suspect]
     Active Substance: DAXIBOTULINUMTOXIN A-LANM
     Indication: Skin wrinkling
     Dosage: UNK GLABELLA
     Route: 065
     Dates: start: 20240926

REACTIONS (4)
  - Eyelid oedema [Unknown]
  - Eyelid thickening [Unknown]
  - Eyelid ptosis [Unknown]
  - Headache [Unknown]

NARRATIVE: CASE EVENT DATE: 20240901
